FAERS Safety Report 20773896 (Version 1)
Quarter: 2022Q2

REPORT INFORMATION
  Report Type: Spontaneous
  Country: US (occurrence: US)
  Receive Date: 20220502
  Receipt Date: 20220502
  Transmission Date: 20220720
  Serious: No
  Sender: FDA-Public Use
  Company Number: US-GSKCCFUS-Case-01362806_AE-78831

PATIENT
  Sex: Male

DRUGS (1)
  1. TRELEGY ELLIPTA [Suspect]
     Active Substance: FLUTICASONE FUROATE\UMECLIDINIUM BROMIDE\VILANTEROL TRIFENATATE
     Indication: Product used for unknown indication
     Dosage: 1 PUFF(S), 1D 200/65.2/25 MCG
     Route: 055
     Dates: start: 2022

REACTIONS (3)
  - Electric shock sensation [Recovered/Resolved]
  - Balance disorder [Recovered/Resolved]
  - Fall [Recovered/Resolved]

NARRATIVE: CASE EVENT DATE: 20220101
